FAERS Safety Report 15609082 (Version 1)
Quarter: 2018Q4

REPORT INFORMATION
  Report Type: Spontaneous
  Country: US (occurrence: US)
  Receive Date: 20181112
  Receipt Date: 20181112
  Transmission Date: 20190205
  Serious: No
  Sender: FDA-Public Use
  Company Number: US-MIST-TIR-2018-0843

PATIENT
  Age: 75 Year
  Sex: Female

DRUGS (2)
  1. TIROSINT [Suspect]
     Active Substance: LEVOTHYROXINE SODIUM
     Indication: THYROIDECTOMY
     Dosage: 75MCG DAILY
     Route: 048
     Dates: start: 2017, end: 2017
  2. TIROSINT [Suspect]
     Active Substance: LEVOTHYROXINE SODIUM
     Dosage: 75MCG DAILY 6 DAYS PER WEEK FOR ONE WEEK ALTERNATING WITH 75MCG DAILY 5 DAYS PER WEEK THE SECOND WEE
     Route: 048
     Dates: start: 2017

REACTIONS (1)
  - Drug level above therapeutic [Unknown]

NARRATIVE: CASE EVENT DATE: 2017
